FAERS Safety Report 22871428 (Version 2)
Quarter: 2023Q4

REPORT INFORMATION
  Report Type: Spontaneous
  Country: US (occurrence: US)
  Receive Date: 20230828
  Receipt Date: 20231130
  Transmission Date: 20240110
  Serious: No
  Sender: FDA-Public Use
  Company Number: US-APELLIS PHARMACEUTICALS-APL-2023-002639

PATIENT
  Age: 80 Year
  Sex: Male

DRUGS (1)
  1. SYFOVRE [Suspect]
     Active Substance: PEGCETACOPLAN
     Indication: Product used for unknown indication
     Dosage: UNK, EVERY 8 WEEKS
     Dates: start: 20230331

REACTIONS (1)
  - Intra-ocular injection complication [Recovered/Resolved]

NARRATIVE: CASE EVENT DATE: 20230331
